FAERS Safety Report 11132964 (Version 1)
Quarter: 2015Q2

REPORT INFORMATION
  Report Type: Spontaneous
  Country: JP (occurrence: JP)
  Receive Date: 20150522
  Receipt Date: 20150522
  Transmission Date: 20150821
  Serious: Yes (Death)
  Sender: FDA-Public Use
  Company Number: JP-TEVA-563276ISR

PATIENT
  Age: 73 Year
  Sex: Male
  Weight: 46 kg

DRUGS (9)
  1. E-FEN BUCCAL [Suspect]
     Active Substance: FENTANYL CITRATE
     Dosage: 100 MCG
     Route: 002
     Dates: start: 20141226, end: 20150204
  2. FENTOS [Concomitant]
     Active Substance: FENTANYL
     Indication: CANCER PAIN
     Dosage: 4 MILLIGRAM DAILY;
     Route: 062
     Dates: start: 20141008, end: 20150204
  3. DECADRON [Concomitant]
     Active Substance: DEXAMETHASONE
     Dosage: 2 MILLIGRAM DAILY;
     Route: 048
     Dates: start: 20141209
  4. E-FEN BUCCAL [Suspect]
     Active Substance: FENTANYL CITRATE
     Dosage: 0 MCG - 200 MCG
     Route: 002
     Dates: start: 20141216, end: 20141225
  5. VERAPAMIL HCL [Concomitant]
     Active Substance: VERAPAMIL HYDROCHLORIDE
     Dosage: 20 MILLIGRAM DAILY;
     Route: 054
     Dates: start: 20150109, end: 20150203
  6. TAKEPRON [Concomitant]
     Active Substance: LANSOPRAZOLE
     Dosage: 30 MILLIGRAM DAILY;
     Route: 048
     Dates: start: 20141008
  7. E-FEN BUCCAL [Suspect]
     Active Substance: FENTANYL CITRATE
     Indication: BREAKTHROUGH PAIN
     Dosage: 50 MCG - 200 MCG
     Route: 002
     Dates: start: 20141212, end: 20141215
  8. EPADEL [Concomitant]
     Active Substance: ICOSAPENT
     Dosage: 1800 MILLIGRAM DAILY;
     Route: 048
     Dates: start: 20141119
  9. TSUMURA DAIKENCHUTO EXTRACT GRANULES FOR ETHICAL USE [Concomitant]
     Active Substance: HERBALS
     Dosage: 7.5 GRAM DAILY;
     Route: 048
     Dates: start: 20141008

REACTIONS (1)
  - Ureteric cancer [Fatal]

NARRATIVE: CASE EVENT DATE: 20150204
